FAERS Safety Report 5697471-X (Version None)
Quarter: 2008Q2

REPORT INFORMATION
  Report Type: 
  Country: None (occurrence: None)
  Receive Date: 20080407
  Receipt Date: 20080331
  Transmission Date: 20081010
  Serious: Yes (Death, Other)
  Sender: FDA-Public Use
  Company Number: PHBS2008DE03852

PATIENT
  Age: 58 Year
  Sex: Male

DRUGS (8)
  1. TACROLIMUS [Suspect]
     Indication: STEM CELL TRANSPLANT
     Dosage: 1 MG, BID
     Route: 065
  2. PREDNISOLONE [Concomitant]
     Indication: STEM CELL TRANSPLANT
     Dosage: 20-80 MG/D
     Route: 065
  3. CYCLOSPORINE [Suspect]
     Indication: STEM CELL TRANSPLANT
     Dosage: 150 MG, BID
     Route: 065
     Dates: start: 20040101
  4. CYCLOSPORINE [Suspect]
     Dosage: 175 MG, BID
     Route: 065
  5. CYCLOSPORINE [Suspect]
     Dosage: 200 MG, BID
     Route: 065
  6. CYCLOSPORINE [Suspect]
     Dosage: 425 MG/D
     Route: 065
  7. CYCLOSPORINE [Suspect]
     Dosage: 200 MG, BID
     Route: 065
  8. CYCLOSPORINE [Suspect]
     Dosage: 150 MG, BID
     Route: 065

REACTIONS (18)
  - ACUTE GRAFT VERSUS HOST DISEASE IN SKIN [None]
  - BLINDNESS [None]
  - CSF TEST ABNORMAL [None]
  - CYTOMEGALOVIRUS INFECTION [None]
  - DEAFNESS [None]
  - DEMYELINATION [None]
  - DISORIENTATION [None]
  - FAECAL INCONTINENCE [None]
  - HEMIANOPIA HOMONYMOUS [None]
  - INFLAMMATION [None]
  - JC VIRUS INFECTION [None]
  - MOOD SWINGS [None]
  - NUCLEAR MAGNETIC RESONANCE IMAGING BRAIN ABNORMAL [None]
  - PROGRESSIVE MULTIFOCAL LEUKOENCEPHALOPATHY [None]
  - SOMNOLENCE [None]
  - TREMOR [None]
  - URINARY INCONTINENCE [None]
  - VERTIGO [None]
